FAERS Safety Report 13182087 (Version 3)
Quarter: 2017Q2

REPORT INFORMATION
  Report Type: Spontaneous
  Country: US (occurrence: US)
  Receive Date: 20170202
  Receipt Date: 20170502
  Transmission Date: 20170830
  Serious: Yes (Other)
  Sender: FDA-Public Use
  Company Number: US-SAOL THERAPEUTICS-2017SAO00202

PATIENT
  Age: 15 Year
  Sex: Female

DRUGS (1)
  1. LIORESAL [Suspect]
     Active Substance: BACLOFEN
     Indication: CEREBRAL PALSY
     Dosage: 398 ?G, \DAY
     Route: 037
     Dates: start: 20160915

REACTIONS (4)
  - Device leakage [Recovered/Resolved]
  - Therapy non-responder [Recovered/Resolved]
  - Psoriasis [Not Recovered/Not Resolved]
  - Implant site extravasation [Not Recovered/Not Resolved]

NARRATIVE: CASE EVENT DATE: 201610
